FAERS Safety Report 20210404 (Version 10)
Quarter: 2023Q2

REPORT INFORMATION
  Report Type: Report from Study
  Country: US (occurrence: US)
  Receive Date: 20211221
  Receipt Date: 20230518
  Transmission Date: 20230722
  Serious: Yes (Hospitalization, Other)
  Sender: FDA-Public Use
  Company Number: US-TAKEDA-2021TUS064643

PATIENT
  Sex: Female
  Weight: 70 kg

DRUGS (19)
  1. HUMAN IMMUNOGLOBULIN G [Suspect]
     Active Substance: HUMAN IMMUNOGLOBULIN G
     Indication: Congenital hypogammaglobulinaemia
     Dosage: 20 GRAM, Q2WEEKS
     Route: 058
     Dates: start: 20210917
  2. HUMAN IMMUNOGLOBULIN G [Suspect]
     Active Substance: HUMAN IMMUNOGLOBULIN G
     Dosage: 24 GRAM, Q2WEEKS
     Route: 058
  3. DIPHENHYDRAMINE [Concomitant]
     Active Substance: DIPHENHYDRAMINE
     Dosage: UNK
     Route: 065
  4. ARAVA [Concomitant]
     Active Substance: LEFLUNOMIDE
     Dosage: UNK
     Route: 065
  5. EPINEPHRINE [Concomitant]
     Active Substance: EPINEPHRINE
     Dosage: UNK
     Route: 065
  6. WELLBUTRIN XL [Concomitant]
     Active Substance: BUPROPION HYDROCHLORIDE
     Dosage: UNK
     Route: 065
  7. VITAMIN D3 [Concomitant]
     Active Substance: CHOLECALCIFEROL
     Dosage: UNK
     Route: 065
  8. OMEPRAZOLE [Concomitant]
     Active Substance: OMEPRAZOLE
     Dosage: UNK
     Route: 065
  9. ACETAMINOPHEN [Concomitant]
     Active Substance: ACETAMINOPHEN
     Dosage: UNK
     Route: 065
  10. LINZESS [Concomitant]
     Active Substance: LINACLOTIDE
     Dosage: UNK
     Route: 065
  11. OLMESARTAN MEDOXOMIL [Concomitant]
     Active Substance: OLMESARTAN MEDOXOMIL
     Dosage: UNK
     Route: 065
  12. DURAFLU [Concomitant]
     Active Substance: ACETAMINOPHEN\DEXTROMETHORPHAN HYDROBROMIDE\GUAIFENESIN\PSEUDOEPHEDRINE HYDROCHLORIDE
     Dosage: UNK
     Route: 065
  13. MAGNESIUM [Concomitant]
     Active Substance: MAGNESIUM
     Dosage: UNK
     Route: 065
  14. LEVOMEFOLIC ACID\METHYLCOBALAMIN\TURMERIC [Concomitant]
     Active Substance: LEVOMEFOLIC ACID\METHYLCOBALAMIN\TURMERIC
     Dosage: UNK
     Route: 065
  15. Lmx [Concomitant]
     Dosage: UNK
     Route: 065
  16. RAYOS [Concomitant]
     Active Substance: PREDNISONE
     Dosage: UNK
     Route: 065
  17. OLMESARTAN [Concomitant]
     Active Substance: OLMESARTAN
     Dosage: UNK
     Route: 065
  18. CIMZIA [Concomitant]
     Active Substance: CERTOLIZUMAB PEGOL
     Dosage: UNK
     Route: 065
  19. DIPHENHYDRAMINE HYDROCHLORIDE [Concomitant]
     Active Substance: DIPHENHYDRAMINE HYDROCHLORIDE

REACTIONS (11)
  - Septic shock [Unknown]
  - Pneumonia [Unknown]
  - Sinusitis [Unknown]
  - Nasopharyngitis [Unknown]
  - Lower respiratory tract infection [Unknown]
  - COVID-19 [Unknown]
  - Influenza [Unknown]
  - Insurance issue [Unknown]
  - Product use issue [Unknown]
  - Inappropriate schedule of product administration [Unknown]
  - Product dose omission issue [Unknown]
